FAERS Safety Report 16716380 (Version 2)
Quarter: 2019Q4

REPORT INFORMATION
  Report Type: Spontaneous
  Country: CN (occurrence: CN)
  Receive Date: 20190819
  Receipt Date: 20191016
  Transmission Date: 20200122
  Serious: Yes (Other)
  Sender: FDA-Public Use
  Company Number: CN-ARBOR PHARMACEUTICALS, LLC-CN-2019ARB001248

PATIENT
  Age: 62 Year
  Sex: Male

DRUGS (2)
  1. PROPAFENONE HYDROCHLORIDE. [Suspect]
     Active Substance: PROPAFENONE HYDROCHLORIDE
     Indication: ATRIAL FIBRILLATION
     Dosage: 70 MG, UNK
     Route: 042
  2. PROPAFENONE HYDROCHLORIDE. [Suspect]
     Active Substance: PROPAFENONE HYDROCHLORIDE
     Dosage: 600 MG, UNK
     Route: 048

REACTIONS (1)
  - Brugada syndrome [Unknown]
